FAERS Safety Report 21204713 (Version 2)
Quarter: 2022Q3

REPORT INFORMATION
  Report Type: Report from Study
  Country: JP (occurrence: JP)
  Receive Date: 20220812
  Receipt Date: 20220907
  Transmission Date: 20221027
  Serious: Yes (Hospitalization)
  Sender: FDA-Public Use
  Company Number: JP-INSMED-2021-10543-JPAA

PATIENT
  Age: 57 Year
  Sex: Female

DRUGS (2)
  1. ARIKAYCE [Suspect]
     Active Substance: AMIKACIN
     Indication: Product used for unknown indication
     Dosage: UNK
     Route: 055
     Dates: start: 2021, end: 20220325
  2. ARIKAYCE [Suspect]
     Active Substance: AMIKACIN
     Dosage: UNK
     Route: 055
     Dates: start: 2022, end: 20220630

REACTIONS (5)
  - Lung disorder [Unknown]
  - Productive cough [Unknown]
  - Dysphonia [Not Recovered/Not Resolved]
  - Therapy cessation [Unknown]
  - Device issue [Unknown]

NARRATIVE: CASE EVENT DATE: 20211201
